FAERS Safety Report 4442909-9 (Version None)
Quarter: 2004Q3

REPORT INFORMATION
  Report Type: 
  Country: None (occurrence: None)
  Receive Date: 20040728
  Receipt Date: 20040520
  Transmission Date: 20050211
  Serious: No
  Sender: FDA-Public Use
  Company Number: USA040568497

PATIENT
  Age: 14 Year

DRUGS (1)
  1. STRATTERA [Suspect]

REACTIONS (3)
  - AFFECT LABILITY [None]
  - DRUG EFFECT DECREASED [None]
  - PSYCHOMOTOR HYPERACTIVITY [None]
